FAERS Safety Report 11464955 (Version 9)
Quarter: 2019Q4

REPORT INFORMATION
  Report Type: Report from Study
  Country: CA (occurrence: CA)
  Receive Date: 20150907
  Receipt Date: 20191004
  Transmission Date: 20200122
  Serious: Yes (Other)
  Sender: FDA-Public Use
  Company Number: CA-ROCHE-1520973

PATIENT
  Age: 32 Year
  Sex: Female
  Weight: 63.5 kg

DRUGS (9)
  1. ACTEMRA [Suspect]
     Active Substance: TOCILIZUMAB
     Dosage: 20 MG PER ML
     Route: 042
     Dates: start: 20190821
  2. ACTEMRA [Suspect]
     Active Substance: TOCILIZUMAB
     Indication: RHEUMATOID ARTHRITIS
     Dosage: ONGOING-YES
     Route: 042
     Dates: start: 20100709
  3. ZOPLICONE [Concomitant]
     Active Substance: ZOPICLONE
     Indication: SLEEP DISORDER
     Route: 065
     Dates: end: 201101
  4. AVAMYS [Concomitant]
     Active Substance: FLUTICASONE FUROATE
     Indication: PRODUCT USED FOR UNKNOWN INDICATION
     Route: 065
     Dates: end: 201101
  5. ATIVAN [Concomitant]
     Active Substance: LORAZEPAM
     Indication: PRODUCT USED FOR UNKNOWN INDICATION
     Route: 065
     Dates: end: 201101
  6. BISOPROL [Concomitant]
     Active Substance: BISOPROLOL FUMARATE
     Indication: PRODUCT USED FOR UNKNOWN INDICATION
     Route: 065
     Dates: end: 201101
  7. ACTEMRA [Suspect]
     Active Substance: TOCILIZUMAB
     Dosage: 20 MG PER ML
     Route: 042
     Dates: start: 20150305
  8. VIMOVO [Concomitant]
     Active Substance: ESOMEPRAZOLE MAGNESIUM\NAPROXEN
     Indication: PRODUCT USED FOR UNKNOWN INDICATION
     Dosage: ONGOING
     Route: 065
     Dates: start: 20130901
  9. CELEBREX [Concomitant]
     Active Substance: CELECOXIB
     Indication: PRODUCT USED FOR UNKNOWN INDICATION
     Route: 065
     Dates: end: 201101

REACTIONS (16)
  - Weight decreased [Unknown]
  - Nasopharyngitis [Not Recovered/Not Resolved]
  - Nasopharyngitis [Recovering/Resolving]
  - Infusion related reaction [Unknown]
  - Arrhythmia [Unknown]
  - Hypotension [Unknown]
  - Sinusitis [Not Recovered/Not Resolved]
  - Cough [Not Recovered/Not Resolved]
  - Oral mucosal blistering [Not Recovered/Not Resolved]
  - Blood pressure fluctuation [Unknown]
  - Hyperthyroidism [Unknown]
  - Rash [Not Recovered/Not Resolved]
  - Hypothyroidism [Unknown]
  - Fatigue [Unknown]
  - Blood pressure systolic abnormal [Unknown]
  - Viral infection [Unknown]

NARRATIVE: CASE EVENT DATE: 20150305
